FAERS Safety Report 4744281-3 (Version None)
Quarter: 2005Q3

REPORT INFORMATION
  Report Type: 
  Country: None (occurrence: None)
  Receive Date: 20050809
  Receipt Date: 20050727
  Transmission Date: 20060218
  Serious: Yes (Hospitalization, Other)
  Sender: FDA-Public Use
  Company Number: 214045

PATIENT
  Age: 52 Year
  Sex: Female
  Weight: 75 kg

DRUGS (6)
  1. MABTHERA(RITUXIMAB) [Suspect]
     Indication: NON-HODGKIN'S LYMPHOMA
     Dosage: 675 MG, INTRAVENOUS
     Route: 042
     Dates: start: 20040921, end: 20050104
  2. DOXORUBICIN HCL [Suspect]
     Indication: NON-HODGKIN'S LYMPHOMA
     Dosage: 68 , INTRAVENOUS
     Route: 042
     Dates: start: 20040921, end: 20050101
  3. CYCLOPHOSPHAMIDE [Suspect]
     Indication: NON-HODGKIN'S LYMPHOMA
     Dosage: 1013 MG, INTRAVENOUS
     Route: 042
     Dates: start: 20040921, end: 20050101
  4. ETOPOSIDE [Suspect]
     Indication: NON-HODGKIN'S LYMPHOMA
     Dosage: 92 MG, INTRAVENOUS
     Route: 042
     Dates: start: 20040921, end: 20050101
  5. VINCRISTINE SULFATE [Suspect]
     Indication: NON-HODGKIN'S LYMPHOMA
     Dates: start: 20040921, end: 20050101
  6. PREDNISONE [Concomitant]

REACTIONS (8)
  - BLOOD IMMUNOGLOBULIN G DECREASED [None]
  - HEPATIC NECROSIS [None]
  - HEPATITIS [None]
  - LEUKOPENIA [None]
  - OPPORTUNISTIC INFECTION [None]
  - SPLENOMEGALY [None]
  - THROMBOCYTOPENIA [None]
  - VIRAL INFECTION [None]
